FAERS Safety Report 5274002-X (Version None)
Quarter: 2007Q1

REPORT INFORMATION
  Report Type: 
  Country: None (occurrence: None)
  Receive Date: 20070323
  Receipt Date: 20070313
  Transmission Date: 20070707
  Serious: Yes (Other)
  Sender: FDA-Public Use
  Company Number: FR-GLAXOSMITHKLINE-B0461990A

PATIENT
  Age: 79 Year
  Sex: Female

DRUGS (3)
  1. DEROXAT [Suspect]
     Indication: CENTRAL PAIN SYNDROME
     Route: 048
     Dates: start: 20070101
  2. FRAXIPARINE [Suspect]
     Route: 065
  3. RISPERDAL [Suspect]
     Route: 065

REACTIONS (5)
  - CEREBROVASCULAR ACCIDENT [None]
  - EPILEPSY [None]
  - HAEMORRHAGIC STROKE [None]
  - LOCKED-IN SYNDROME [None]
  - SOMNOLENCE [None]
